FAERS Safety Report 19357830 (Version 1)
Quarter: 2021Q2

REPORT INFORMATION
  Report Type: Other
  Country: CA (occurrence: CA)
  Receive Date: 20210602
  Receipt Date: 20210602
  Transmission Date: 20210717
  Serious: Yes (Other)
  Sender: FDA-Public Use
  Company Number: CA-ROCHE-2365136

PATIENT
  Age: 52 Year
  Sex: Female

DRUGS (14)
  1. METHYLDOPA. [Concomitant]
     Active Substance: METHYLDOPA
  2. OXYCODONE [Concomitant]
     Active Substance: OXYCODONE
  3. CIPRALEX [Concomitant]
     Active Substance: ESCITALOPRAM OXALATE
  4. RITUXAN [Suspect]
     Active Substance: RITUXIMAB
     Route: 042
     Dates: start: 20190325
  5. TRAMADOL. [Concomitant]
     Active Substance: TRAMADOL
  6. ACETAMINOPHEN. [Concomitant]
     Active Substance: ACETAMINOPHEN
     Indication: PREMEDICATION
     Route: 048
     Dates: start: 20160114
  7. METHOTREXATE. [Concomitant]
     Active Substance: METHOTREXATE
     Route: 065
  8. ATIVAN [Concomitant]
     Active Substance: LORAZEPAM
  9. SEPTRA [Concomitant]
     Active Substance: SULFAMETHOXAZOLE\TRIMETHOPRIM
     Dosage: FOR 10 DAYS
  10. MONUROL [Concomitant]
     Active Substance: FOSFOMYCIN TROMETHAMINE
  11. CIPROLEX [Concomitant]
     Active Substance: CIPROFLOXACIN HYDROCHLORIDE
  12. DIPHENHYDRAMINE. [Concomitant]
     Active Substance: DIPHENHYDRAMINE
     Indication: PREMEDICATION
     Route: 048
     Dates: start: 20160114
  13. METHYLPREDNISOLONE. [Concomitant]
     Active Substance: METHYLPREDNISOLONE
     Indication: PREMEDICATION
     Route: 042
     Dates: start: 20160114
  14. RITUXAN [Suspect]
     Active Substance: RITUXIMAB
     Indication: SLE ARTHRITIS
     Dosage: PREVIOUS RITUXAN INFUSION: 20/SEP/2019
     Route: 042
     Dates: start: 20160114

REACTIONS (26)
  - Movement disorder [Unknown]
  - Fatigue [Unknown]
  - Abdominal pain upper [Unknown]
  - Depression [Unknown]
  - Neck pain [Unknown]
  - Blood pressure diastolic abnormal [Unknown]
  - Nasopharyngitis [Not Recovered/Not Resolved]
  - Arthralgia [Unknown]
  - Gastrointestinal oedema [Unknown]
  - Bladder mass [Unknown]
  - Dyshidrotic eczema [Unknown]
  - Diarrhoea [Unknown]
  - Perineal pain [Unknown]
  - Allergy to animal [Unknown]
  - Kidney infection [Not Recovered/Not Resolved]
  - Sinusitis [Unknown]
  - Off label use [Unknown]
  - Hyperhidrosis [Unknown]
  - Ovarian vein thrombosis [Unknown]
  - Suicidal ideation [Unknown]
  - Eye pruritus [Unknown]
  - Lacrimation increased [Unknown]
  - Urinary tract infection [Unknown]
  - Pain in extremity [Unknown]
  - Fibromyalgia [Unknown]
  - Bladder pain [Unknown]

NARRATIVE: CASE EVENT DATE: 2019
